FAERS Safety Report 6411833-4 (Version None)
Quarter: 2009Q4

REPORT INFORMATION
  Report Type: 
  Country: None (occurrence: None)
  Receive Date: 20091023
  Receipt Date: 20091014
  Transmission Date: 20100525
  Serious: Yes (Hospitalization)
  Sender: FDA-Public Use
  Company Number: US-JNJFOC-20091005990

PATIENT
  Sex: Female
  Weight: 93.44 kg

DRUGS (3)
  1. REMICADE [Suspect]
     Route: 042
     Dates: end: 20080813
  2. REMICADE [Suspect]
     Route: 042
     Dates: end: 20080813
  3. REMICADE [Suspect]
     Indication: CROHN'S DISEASE
     Dosage: 7 INFUSIONS PRIOR TO BASELINE ON UNSPECIFIED DATES
     Route: 042
     Dates: end: 20080813

REACTIONS (3)
  - ABDOMINAL ABSCESS [None]
  - ANASTOMOTIC COMPLICATION [None]
  - BACTERIAL INFECTION [None]
